FAERS Safety Report 5331024-8 (Version None)
Quarter: 2007Q2

REPORT INFORMATION
  Report Type: 
  Country: None (occurrence: None)
  Receive Date: 20070522
  Receipt Date: 20070511
  Transmission Date: 20071010
  Serious: Yes (Hospitalization)
  Sender: FDA-Public Use
  Company Number: US-ROCHE-497293

PATIENT
  Age: 67 Year
  Sex: Female

DRUGS (1)
  1. CELLCEPT [Suspect]
     Route: 048
     Dates: start: 19940101

REACTIONS (3)
  - CONFUSIONAL STATE [None]
  - MENTAL STATUS CHANGES [None]
  - RESPIRATORY FAILURE [None]
